FAERS Safety Report 20207388 (Version 1)
Quarter: 2021Q4

REPORT INFORMATION
  Report Type: Spontaneous
  Country: CH (occurrence: CH)
  Receive Date: 20211220
  Receipt Date: 20211220
  Transmission Date: 20220303
  Serious: Yes (Hospitalization, Other)
  Sender: FDA-Public Use
  Company Number: None

PATIENT
  Age: 82 Year
  Sex: Female

DRUGS (6)
  1. VOLTAREN [Suspect]
     Active Substance: DICLOFENAC SODIUM
     Indication: Facet joint block
     Dosage: 75 MG, TOTAL
     Route: 030
     Dates: start: 20210531, end: 20210531
  2. IOPAMIRO [Suspect]
     Active Substance: IOPAMIDOL
     Indication: Facet joint block
     Dosage: 0.4 ML, TOTAL
     Route: 030
     Dates: start: 20210531, end: 20210531
  3. BUPIVACAINE [Suspect]
     Active Substance: BUPIVACAINE
     Indication: Facet joint block
     Dosage: 5 MG, TOTAL
     Route: 030
     Dates: start: 20210531, end: 20210531
  4. PANTOZOL [Concomitant]
     Active Substance: PANTOPRAZOLE SODIUM
     Indication: Product used for unknown indication
     Dosage: 1 DOSAGE FORM, QD
     Route: 048
  5. DAFALGAN [Concomitant]
     Active Substance: ACETAMINOPHEN
     Indication: Pain
     Dosage: 1 DOSAGE FORM, QD
     Route: 048
  6. ASPIRIN [Concomitant]
     Active Substance: ASPIRIN
     Indication: Pain
     Dosage: 1 DOSAGE FORM, QD
     Route: 048

REACTIONS (2)
  - Hypersensitivity [Recovered/Resolved]
  - Anaphylactic shock [Unknown]

NARRATIVE: CASE EVENT DATE: 20210531
